FAERS Safety Report 15654647 (Version 2)
Quarter: 2018Q4

REPORT INFORMATION
  Report Type: Spontaneous
  Country: KR (occurrence: KR)
  Receive Date: 20181126
  Receipt Date: 20181126
  Transmission Date: 20190205
  Serious: Yes (Death, Other)
  Sender: FDA-Public Use
  Company Number: KR-009507513-1811KOR008873

PATIENT
  Sex: Female

DRUGS (25)
  1. SODIUM CHLORIDE. [Concomitant]
     Active Substance: SODIUM CHLORIDE
     Dosage: QUANTITY:2, DAYS: 7
     Dates: start: 20181018, end: 20181031
  2. LASIX [Concomitant]
     Active Substance: FUROSEMIDE
     Dosage: QUANTITY:2, DAYS: 3
     Dates: start: 20181016, end: 20181031
  3. SODIUM CHLORIDE. [Concomitant]
     Active Substance: SODIUM CHLORIDE
     Dosage: QUANTITY:6, DAYS: 1
     Dates: start: 20181017
  4. KEYTRUDA [Suspect]
     Active Substance: PEMBROLIZUMAB
     Indication: CERVIX CARCINOMA RECURRENT
     Dosage: QUANTITY:2, DAYS: 1
     Dates: start: 20181027
  5. DUPHALAC [Concomitant]
     Active Substance: LACTULOSE
     Dosage: QUANTITY:3, DAYS: 18
     Dates: start: 20181012, end: 20181102
  6. MORPHINE HYDROCHLORIDE [Concomitant]
     Active Substance: MORPHINE HYDROCHLORIDE
     Dosage: QUANTITY:10, DAYS: 2
     Dates: start: 20181025, end: 20181031
  7. PINE [Concomitant]
     Dosage: QUANTITY:1, DAYS: 1
     Dates: start: 20181019
  8. CYNACTEN [Concomitant]
     Dosage: QUANTITY:1, DAYS: 2
     Dates: start: 20181019, end: 20181021
  9. SODIUM CHLORIDE. [Concomitant]
     Active Substance: SODIUM CHLORIDE
     Dosage: QUANTITY:2, DAYS: 1
     Dates: start: 20181027
  10. DUROGESIC [Concomitant]
     Active Substance: FENTANYL
     Dosage: 50MCG/H 21CM2, QUANTITY:1, DAYS: 2
     Dates: start: 20181011, end: 20181014
  11. TAZOPERAN [Concomitant]
     Dosage: QUANTITY:2, DAYS: 1
     Dates: start: 20181017
  12. NORPIN INJECTION [Concomitant]
     Dosage: QUANTITY:9, DAYS: 1
     Dates: start: 20181102
  13. DEXTROSE. [Concomitant]
     Active Substance: DEXTROSE
     Dosage: QUANTITY:1 DAYS: 1
     Dates: start: 20181019
  14. DUPHALAC [Concomitant]
     Active Substance: LACTULOSE
     Dosage: QUANTITY:5, DAYS: 1
     Dates: start: 20181013
  15. MORPHINE HYDROCHLORIDE [Concomitant]
     Active Substance: MORPHINE HYDROCHLORIDE
     Dosage: QUANTITY:13, DAYS: 1
     Dates: start: 20181017
  16. MEPERIDINE HYDROCHLORIDE. [Concomitant]
     Active Substance: MEPERIDINE HYDROCHLORIDE
     Dosage: QUANTITY:1, DAYS: 1
     Dates: start: 20181030
  17. DEXTROSE. [Concomitant]
     Active Substance: DEXTROSE
     Dosage: QUANTITY:2, DAYS: 1
     Dates: start: 20181017
  18. TRIAXONE [Concomitant]
     Dosage: QUANTITY:2, DAYS: 2
     Dates: start: 20181018, end: 20181101
  19. CHLORPHENIRAMINE MALEATE. [Concomitant]
     Active Substance: CHLORPHENIRAMINE MALEATE
     Dosage: QUANTITY:1, DAYS: 3
     Dates: start: 20181020, end: 20181023
  20. BLOOD, PLASMA [Concomitant]
     Active Substance: HUMAN PLASMA
     Dosage: QUANTITY:1, DAYS: 12
     Dates: start: 20181018, end: 20181030
  21. ALDACTONE (CANRENOATE POTASSIUM) [Concomitant]
     Active Substance: CANRENOATE POTASSIUM
     Dosage: QUANTITY:2, DAYS: 14
     Dates: start: 20181013, end: 20181030
  22. NEXIUM [Concomitant]
     Active Substance: ESOMEPRAZOLE MAGNESIUM
     Dosage: QUANTITY:1, DAYS: 18
     Dates: start: 20181013, end: 20181102
  23. TRIAXONE [Concomitant]
     Dosage: QUANTITY:1, DAYS: 6
     Dates: start: 20181017, end: 20181103
  24. DEXTROSE. [Concomitant]
     Active Substance: DEXTROSE
     Dosage: QUANTITY:3, DAYS: 1
     Dates: start: 20081102
  25. BLOOD CELLS, RED [Concomitant]
     Active Substance: HUMAN RED BLOOD CELL
     Dosage: QUANTITY:2, DAYS: 1
     Dates: start: 20181020

REACTIONS (5)
  - Hepatorenal syndrome [Fatal]
  - Hepatic failure [Fatal]
  - Malignant neoplasm progression [Fatal]
  - Metastases to liver [Fatal]
  - Product use in unapproved indication [Unknown]

NARRATIVE: CASE EVENT DATE: 20181027
